FAERS Safety Report 25850043 (Version 1)
Quarter: 2025Q3

REPORT INFORMATION
  Report Type: Report from Study
  Country: US (occurrence: US)
  Receive Date: 20250926
  Receipt Date: 20250926
  Transmission Date: 20251020
  Serious: Yes (Other)
  Sender: ALEXION PHARMACEUTICALS
  Company Number: US-AstraZeneca-CH-00956152A

PATIENT
  Sex: Male

DRUGS (1)
  1. FORMOTEROL FUMARATE\GLYCOPYRROLATE [Suspect]
     Active Substance: FORMOTEROL FUMARATE\GLYCOPYRROLATE
     Route: 065

REACTIONS (13)
  - Chronic obstructive pulmonary disease [Unknown]
  - Vitamin D deficiency [Unknown]
  - Immunodeficiency [Unknown]
  - Glucose tolerance impaired [Unknown]
  - Type V hyperlipidaemia [Unknown]
  - Seasonal allergy [Unknown]
  - Chronic kidney disease [Unknown]
  - Hypoacusis [Unknown]
  - Micturition disorder [Unknown]
  - Constipation [Unknown]
  - Dizziness [Unknown]
  - Weight decreased [Unknown]
  - Essential hypertension [Unknown]
